FAERS Safety Report 20429675 (Version 1)
Quarter: 2022Q1

REPORT INFORMATION
  Report Type: Report from Study
  Country: FR (occurrence: FR)
  Receive Date: 20220204
  Receipt Date: 20220204
  Transmission Date: 20220423
  Serious: Yes (Other)
  Sender: FDA-Public Use
  Company Number: FR-SERVIER-S19009582

PATIENT

DRUGS (7)
  1. PEGASPARGASE [Suspect]
     Active Substance: PEGASPARGASE
     Indication: Acute lymphocytic leukaemia
     Dosage: 1200 IU, QD, D12
     Route: 042
     Dates: start: 20190730, end: 20190816
  2. VINCRISTINE [Suspect]
     Active Substance: VINCRISTINE
     Indication: Acute lymphocytic leukaemia
     Dosage: 0.7 MG, ON D8, D15, D22, D29
     Route: 042
     Dates: start: 20190726, end: 20190815
  3. DAUNORUBICIN [Suspect]
     Active Substance: DAUNORUBICIN
     Indication: Acute lymphocytic leukaemia
     Dosage: 14 MG (30 MG/M2), ON D8, D15, D22
     Route: 042
     Dates: start: 20190726, end: 20190809
  4. PREDNISOLONE [Suspect]
     Active Substance: PREDNISOLONE
     Indication: Acute lymphocytic leukaemia
     Dosage: 28.2 MG (60 MG/M2), QD FROM D8 TO D28
     Route: 042
     Dates: start: 20190726, end: 20190818
  5. METHOTREXATE [Suspect]
     Active Substance: METHOTREXATE
     Indication: Acute lymphocytic leukaemia
     Dosage: 8 MG, ON D9, D13, D18, D24
     Route: 037
     Dates: start: 20190727, end: 20190817
  6. CYTARABINE [Suspect]
     Active Substance: CYTARABINE
     Indication: Acute lymphocytic leukaemia
     Dosage: 20 MG, ON D9, D13, D18, D24
     Route: 037
     Dates: start: 20190727, end: 20190817
  7. HYDROCORTISONE [Suspect]
     Active Substance: HYDROCORTISONE
     Indication: Acute lymphocytic leukaemia
     Dosage: 10 MG ON D9,D13,D18, D24
     Route: 037
     Dates: start: 20190727, end: 20190817

REACTIONS (3)
  - Mucosal inflammation [Recovered/Resolved]
  - Cholestasis [Recovered/Resolved]
  - Bronchopulmonary aspergillosis [Recovered/Resolved]

NARRATIVE: CASE EVENT DATE: 20190818
